FAERS Safety Report 8793875 (Version 1)
Quarter: 2012Q4

REPORT INFORMATION
  Report Type: Report from Study
  Country: JP (occurrence: JP)
  Receive Date: 20120917
  Receipt Date: 20120917
  Transmission Date: 20130627
  Serious: Yes (Hospitalization)
  Sender: FDA-Public Use
  Company Number: JP-ROCHE-1117052

PATIENT
  Age: 50 Year
  Sex: Male
  Weight: 72.74 kg

DRUGS (2)
  1. PEGASYS [Suspect]
     Indication: HEPATITIS B
     Route: 058
     Dates: start: 20111208, end: 20120409
  2. CRAVIT [Concomitant]
     Route: 048
     Dates: start: 20111207, end: 20111209

REACTIONS (2)
  - Atrioventricular block complete [Recovering/Resolving]
  - Loss of consciousness [Recovering/Resolving]
